FAERS Safety Report 8815239 (Version 1)
Quarter: 2012Q4

REPORT INFORMATION
  Report Type: 
  Country: US (occurrence: US)
  Receive Date: 20120928
  Receipt Date: 20120928
  Transmission Date: 20130627
  Serious: No
  Sender: FDA-Public Use
  Company Number: US-BAYER-2012-101431

PATIENT
  Sex: Female

DRUGS (5)
  1. BETASERON [Suspect]
     Dosage: 0.25 mg (1 ML), QOD
     Route: 058
  2. LISINOPRIL [Concomitant]
     Dosage: 20 mg, UNK
     Route: 048
  3. MULTIVITAMIN [Concomitant]
     Route: 048
  4. VITAMIN D [Concomitant]
     Dosage: 1000 u, UNK
     Route: 048
  5. WELLBUTRIN [Concomitant]
     Dosage: 100 mg, UNK
     Route: 048

REACTIONS (3)
  - Injection site erythema [Unknown]
  - Injection site haematoma [Unknown]
  - Injection site pain [Unknown]
